FAERS Safety Report 10044519 (Version 2)
Quarter: 2014Q2

REPORT INFORMATION
  Report Type: Spontaneous
  Country: US (occurrence: US)
  Receive Date: 20140328
  Receipt Date: 20140505
  Transmission Date: 20141212
  Serious: No
  Sender: FDA-Public Use
  Company Number: US-B.I. PHARMACEUTICALS,INC./RIDGEFIELD-2014-BI-12931BP

PATIENT
  Age: 70 Year
  Sex: Male
  Weight: 78 kg

DRUGS (2)
  1. MICARDIS HCT TABLETS [Suspect]
     Indication: HYPERTENSION
     Dosage: STRENGTH: 80 MG / 12.5 MG; DAILY DOSE: 80MG / 12.5 MG
     Route: 048
     Dates: start: 20140307, end: 20140320
  2. PROVENTAL [Concomitant]
     Indication: ASTHMA
     Dosage: FORMULATION:(INHALATION AEROSOL)
     Route: 055

REACTIONS (1)
  - Blood potassium increased [Not Recovered/Not Resolved]
